FAERS Safety Report 7350348-6 (Version None)
Quarter: 2011Q1

REPORT INFORMATION
  Report Type: 
  Country: None (occurrence: None)
  Receive Date: 20110314
  Receipt Date: 20110303
  Transmission Date: 20110831
  Serious: Yes (Other)
  Sender: FDA-Public Use
  Company Number: US-ASTRAZENECA-2011SE12253

PATIENT
  Age: 50 Year
  Sex: Female

DRUGS (1)
  1. SYMBICORT [Suspect]
     Indication: CHRONIC OBSTRUCTIVE PULMONARY DISEASE
     Route: 055

REACTIONS (4)
  - CENTRAL NERVOUS SYSTEM LESION [None]
  - CEREBROVASCULAR ACCIDENT [None]
  - ABDOMINAL NEOPLASM [None]
  - FIBROMYALGIA [None]
